FAERS Safety Report 8506689 (Version 4)
Quarter: 2013Q2

REPORT INFORMATION
  Report Type: Spontaneous
  Country: US (occurrence: US)
  Receive Date: 20120412
  Receipt Date: 20130531
  Transmission Date: 20140414
  Serious: Yes (Hospitalization, Disabling)
  Sender: FDA-Public Use
  Company Number: US-US-EMD SERONO, INC.-7124198

PATIENT
  Age: 48 Year
  Sex: Male
  Weight: 82 kg

DRUGS (3)
  1. REBIF [Suspect]
     Indication: MULTIPLE SCLEROSIS
     Route: 058
     Dates: start: 20051021, end: 20090109
  2. REBIF [Suspect]
     Route: 058
     Dates: start: 20101209
  3. KEPPRA [Concomitant]
     Indication: CONVULSION
     Dates: start: 2005

REACTIONS (6)
  - Pneumonia aspiration [Recovered/Resolved]
  - Gait disturbance [Not Recovered/Not Resolved]
  - Dysstasia [Unknown]
  - Bedridden [Recovering/Resolving]
  - Dyspraxia [Not Recovered/Not Resolved]
  - Aphasia [Recovering/Resolving]
